FAERS Safety Report 5376309-4 (Version None)
Quarter: 2007Q2

REPORT INFORMATION
  Report Type: 
  Country: None (occurrence: None)
  Receive Date: 20070628
  Receipt Date: 20070619
  Transmission Date: 20071010
  Serious: Yes (Congenital Anomaly)
  Sender: FDA-Public Use
  Company Number: 2007AL002443

PATIENT

DRUGS (3)
  1. FLUOXETINE [Suspect]
     Dosage: 20 MG; QD; TRANSP
     Route: 064
     Dates: start: 20010402
  2. FERROUS SULFATE TAB [Concomitant]
  3. SALBUTAMOL [Concomitant]

REACTIONS (2)
  - AUTISM [None]
  - DRUG EXPOSURE DURING PREGNANCY [None]
